FAERS Safety Report 9152229 (Version 1)
Quarter: 2013Q1

REPORT INFORMATION
  Report Type: Spontaneous
  Country: US (occurrence: US)
  Receive Date: 20130308
  Receipt Date: 20130308
  Transmission Date: 20140127
  Serious: No
  Sender: FDA-Public Use
  Company Number: US-009507513-1303USA004147

PATIENT
  Sex: Male

DRUGS (3)
  1. CHLOR-TRIMETON [Suspect]
     Indication: PRODUCT USED FOR UNKNOWN INDICATION
     Dosage: UNK, ONCE
     Route: 048
     Dates: start: 20130303
  2. CHLOR-TRIMETON [Suspect]
     Dosage: UNK, ONCE
     Route: 048
     Dates: start: 20130303
  3. CHLOR-TRIMETON [Suspect]
     Dosage: UNK, ONCE
     Route: 048
     Dates: start: 20130303

REACTIONS (4)
  - Mobility decreased [Unknown]
  - Arthralgia [Unknown]
  - Pain in extremity [Unknown]
  - Muscular weakness [Unknown]
